FAERS Safety Report 5281518-9 (Version None)
Quarter: 2007Q1

REPORT INFORMATION
  Report Type: 
  Country: None (occurrence: None)
  Receive Date: 20070323
  Receipt Date: 20070323
  Transmission Date: 20070707
  Serious: No
  Sender: FDA-Public Use
  Company Number: None

PATIENT

DRUGS (2)
  1. ONDANSETRON [Suspect]
     Indication: ANAESTHETIC COMPLICATION
     Dosage: 4MG ONCE IVP
     Route: 042
  2. ONDANSETRON [Suspect]
     Indication: NAUSEA
     Dosage: 4MG ONCE IVP
     Route: 042

REACTIONS (1)
  - DRUG EFFECT DECREASED [None]
